FAERS Safety Report 20594648 (Version 1)
Quarter: 2022Q1

REPORT INFORMATION
  Report Type: Spontaneous
  Country: SE (occurrence: SE)
  Receive Date: 20220315
  Receipt Date: 20220315
  Transmission Date: 20220424
  Serious: Yes (Other)
  Sender: FDA-Public Use
  Company Number: SE-ANTARES PHARMA, INC.-2022-LIT-TE-0002

PATIENT

DRUGS (2)
  1. TESTOSTERONE ENANTHATE [Suspect]
     Active Substance: TESTOSTERONE ENANTHATE
     Indication: Delayed puberty
     Dosage: UNK UNK, UNKNOWN
     Route: 030
  2. TESTOSTERONE ENANTHATE [Suspect]
     Active Substance: TESTOSTERONE ENANTHATE
     Indication: Product use in unapproved indication

REACTIONS (2)
  - Arthritis reactive [Unknown]
  - Product use in unapproved indication [Unknown]
